FAERS Safety Report 7348321-7 (Version None)
Quarter: 2011Q1

REPORT INFORMATION
  Report Type: 
  Country: None (occurrence: None)
  Receive Date: 20110311
  Receipt Date: 20110307
  Transmission Date: 20110831
  Serious: Yes (Death)
  Sender: FDA-Public Use
  Company Number: US-PFIZER INC-2011006036

PATIENT
  Sex: Male

DRUGS (3)
  1. CARDURA [Suspect]
     Dosage: UNK
  2. CELEBREX [Suspect]
     Dosage: UNK
  3. XALATAN [Suspect]
     Dosage: UNK

REACTIONS (1)
  - DEATH [None]
